FAERS Safety Report 14563256 (Version 2)
Quarter: 2018Q1

REPORT INFORMATION
  Report Type: Spontaneous
  Country: JP (occurrence: JP)
  Receive Date: 20180222
  Receipt Date: 20180306
  Transmission Date: 20180509
  Serious: No
  Sender: FDA-Public Use
  Company Number: JP-GLAXOSMITHKLINE-JP2018JPN027366

PATIENT
  Age: 6 Decade
  Sex: Female

DRUGS (2)
  1. VALTREX [Suspect]
     Active Substance: VALACYCLOVIR HYDROCHLORIDE
     Indication: ORAL HERPES
     Dosage: 500 MG, BID
     Route: 048
  2. ARASENA-A [Concomitant]
     Active Substance: VIDARABINE
     Dosage: UNK

REACTIONS (2)
  - Therapy cessation [Unknown]
  - Scab [Unknown]
